FAERS Safety Report 8593400 (Version 3)
Quarter: 2014Q1

REPORT INFORMATION
  Report Type: Spontaneous
  Country: US (occurrence: US)
  Receive Date: 20120604
  Receipt Date: 20140109
  Transmission Date: 20141002
  Serious: Yes (Hospitalization, Disabling)
  Sender: FDA-Public Use
  Company Number: US-ASTRAZENECA-2012SE35285

PATIENT
  Age: 49 Year
  Sex: Female

DRUGS (25)
  1. NEXIUM [Suspect]
     Indication: ABDOMINAL PAIN UPPER
     Route: 048
     Dates: end: 2010
  2. NEXIUM [Suspect]
     Indication: ABDOMINAL PAIN UPPER
     Route: 048
     Dates: start: 20061213
  3. ZANTAC [Concomitant]
     Dates: start: 20100202, end: 20100610
  4. PLAVIX [Concomitant]
     Indication: ANTICOAGULANT THERAPY
     Dates: start: 20070212
  5. TUMS [Concomitant]
     Indication: DYSPEPSIA
     Dates: start: 1990
  6. ROLAIDS [Concomitant]
     Indication: DYSPEPSIA
     Dates: start: 1992
  7. METFORMIN / METFORMIN HCL [Concomitant]
     Indication: DIABETES MELLITUS
     Dates: start: 20090727
  8. MILK THISTLE [Concomitant]
     Indication: HEPATIC STEATOSIS
  9. VIT D3 [Concomitant]
     Indication: HEPATIC STEATOSIS
  10. VIT D3 [Concomitant]
     Indication: HEPATIC STEATOSIS
  11. VIT D3 [Concomitant]
     Indication: HEPATIC STEATOSIS
  12. ASPIRIN [Concomitant]
     Indication: ANTICOAGULANT THERAPY
  13. CRESTOR [Concomitant]
     Indication: ANTICOAGULANT THERAPY
     Route: 048
  14. CRESTOR [Concomitant]
     Indication: ANTICOAGULANT THERAPY
     Route: 048
     Dates: start: 20060620
  15. VIT E [Concomitant]
     Indication: ANTICOAGULANT THERAPY
  16. TRICOR [Concomitant]
     Indication: ANTICOAGULANT THERAPY
     Dates: start: 20090727
  17. NITROSTAT [Concomitant]
     Indication: ANGINA PECTORIS
  18. ADVAIR [Concomitant]
     Indication: ASTHMA
     Dosage: 150/50 MEQ
  19. COMBIVENT RESPIMAT [Concomitant]
     Indication: ASTHMA
  20. COMBIVENT RESPIMAT [Concomitant]
     Indication: ASTHMA
     Dosage: INHALE 2 PUFFS 4 TIMES A DAY
     Route: 055
     Dates: start: 20070927
  21. LEXAPRO [Concomitant]
     Dates: start: 20061213
  22. TRAZADONE [Concomitant]
     Dates: start: 20080123
  23. ZOLOFT [Concomitant]
     Dates: start: 20080123
  24. FLEXERIL [Concomitant]
     Dates: start: 20070320
  25. SINGULAIR [Concomitant]
     Dates: start: 20071002

REACTIONS (14)
  - Asthma [Unknown]
  - Sleep apnoea syndrome [Unknown]
  - Adverse drug reaction [Unknown]
  - Fibromyalgia [Unknown]
  - Diabetes mellitus [Unknown]
  - Arthritis [Unknown]
  - Osteoporosis [Unknown]
  - Foot fracture [Unknown]
  - Bone disorder [Unknown]
  - Hepatic steatosis [Unknown]
  - Vitamin D deficiency [Unknown]
  - Multiple fractures [Unknown]
  - Osteopenia [Unknown]
  - Rheumatoid arthritis [Unknown]
